FAERS Safety Report 9934025 (Version 2)
Quarter: 2014Q1

REPORT INFORMATION
  Report Type: Spontaneous
  Country: US (occurrence: US)
  Receive Date: 20140228
  Receipt Date: 20140228
  Transmission Date: 20141002
  Serious: No
  Sender: FDA-Public Use
  Company Number: US-ABBVIE-13P-163-1181672-00

PATIENT
  Age: 61 Year
  Sex: Male
  Weight: 112.59 kg

DRUGS (3)
  1. ANDROGEL [Suspect]
     Indication: BLOOD TESTOSTERONE DECREASED
     Dosage: ONCE A WEEK OR EVERY OTHER DAY
     Dates: start: 20130406, end: 201307
  2. TESTOPEL [Suspect]
     Indication: PRODUCT USED FOR UNKNOWN INDICATION
     Dates: start: 201305
  3. LEVITRA [Suspect]
     Indication: ERECTILE DYSFUNCTION
     Dates: start: 201305

REACTIONS (6)
  - Somnolence [Unknown]
  - Hypersomnia [Unknown]
  - Dysphonia [Unknown]
  - Hair growth abnormal [Unknown]
  - Swelling [Unknown]
  - Medication error [Unknown]
